FAERS Safety Report 25609768 (Version 1)
Quarter: 2025Q3

REPORT INFORMATION
  Report Type: Spontaneous
  Country: KR (occurrence: KR)
  Receive Date: 20250728
  Receipt Date: 20250728
  Transmission Date: 20251020
  Serious: Yes (Other)
  Sender: TAKEDA
  Company Number: KR-TAKEDA-2025TUS065783

PATIENT
  Age: 70 Year
  Sex: Female

DRUGS (7)
  1. NINLARO [Suspect]
     Active Substance: IXAZOMIB CITRATE
     Indication: Plasma cell myeloma
  2. NINLARO [Suspect]
     Active Substance: IXAZOMIB CITRATE
  3. NINLARO [Suspect]
     Active Substance: IXAZOMIB CITRATE
  4. DEXAMETHASONE [Suspect]
     Active Substance: DEXAMETHASONE
     Indication: Plasma cell myeloma
     Dosage: 7.5 MILLIGRAM, BID
     Dates: start: 20191007, end: 20200827
  5. LENALIDOMIDE [Suspect]
     Active Substance: LENALIDOMIDE
     Indication: Plasma cell myeloma
  6. LENALIDOMIDE [Suspect]
     Active Substance: LENALIDOMIDE
  7. LENALIDOMIDE [Suspect]
     Active Substance: LENALIDOMIDE
     Dosage: 5 MILLIGRAM, QOD
     Dates: start: 20210331

REACTIONS (13)
  - Sinus node dysfunction [Unknown]
  - Electrocardiogram QT prolonged [Unknown]
  - Neutropenia [Unknown]
  - Hypertension [Unknown]
  - Therapy partial responder [Unknown]
  - Myalgia [Unknown]
  - Sputum purulent [Unknown]
  - Rhinorrhoea [Unknown]
  - Asthenia [Unknown]
  - Cough [Unknown]
  - Vomiting [Unknown]
  - Nausea [Unknown]
  - Diarrhoea [Unknown]

NARRATIVE: CASE EVENT DATE: 20191007
